FAERS Safety Report 7755292-8 (Version None)
Quarter: 2011Q3

REPORT INFORMATION
  Report Type: 
  Country: None (occurrence: None)
  Receive Date: 20110916
  Receipt Date: 20110909
  Transmission Date: 20111222
  Serious: Yes (Other)
  Sender: FDA-Public Use
  Company Number: JP-PFIZER INC-2011181438

PATIENT
  Age: 77 Year
  Sex: Female

DRUGS (4)
  1. LOXONIN [Concomitant]
  2. AZULFIDINE [Suspect]
     Dosage: UNK
     Route: 048
     Dates: start: 20110322, end: 20110806
  3. MUCOSTA [Concomitant]
  4. CELECOXIB [Concomitant]

REACTIONS (2)
  - VAGINAL HAEMORRHAGE [None]
  - HAEMATURIA [None]
